FAERS Safety Report 5991147-7 (Version None)
Quarter: 2008Q4

REPORT INFORMATION
  Report Type: 
  Country: None (occurrence: None)
  Receive Date: 20081202
  Receipt Date: 20080505
  Transmission Date: 20090506
  Serious: Yes (Other)
  Sender: FDA-Public Use
  Company Number: WAES 0805USA00894

PATIENT
  Sex: Female

DRUGS (1)
  1. FOSAMAX [Suspect]
     Indication: OSTEOPENIA
     Dosage: 10 MG/DAILY/PO
     Route: 048
     Dates: start: 19960101, end: 20060601

REACTIONS (7)
  - DENTAL CARIES [None]
  - DRY MOUTH [None]
  - GINGIVITIS [None]
  - OSTEONECROSIS [None]
  - PERIODONTAL DISEASE [None]
  - RESORPTION BONE INCREASED [None]
  - TOOTH INFECTION [None]
